FAERS Safety Report 4663321-3 (Version None)
Quarter: 2005Q2

REPORT INFORMATION
  Report Type: 
  Country: None (occurrence: None)
  Receive Date: 20050511
  Receipt Date: 20050222
  Transmission Date: 20051028
  Serious: Yes (Other)
  Sender: FDA-Public Use
  Company Number: 371589

PATIENT
  Age: 51 Year
  Sex: Female
  Weight: 88.9 kg

DRUGS (2)
  1. PEGASYS [Suspect]
     Indication: HEPATITIS C
     Dosage: 180 MCG 1 PER 1 WEEK INTRAMUSCULAR
     Route: 030
     Dates: start: 20040511
  2. COPEGUS [Suspect]
     Indication: HEPATITIS C
     Dosage: 3 DOSE FORM 2 PER 1 DAY, ORAL
     Route: 048
     Dates: start: 20040511

REACTIONS (18)
  - COUGH [None]
  - DRY SKIN [None]
  - DYSPNOEA [None]
  - FATIGUE [None]
  - HAEMOGLOBIN DECREASED [None]
  - HEADACHE [None]
  - HYPERTHYROIDISM [None]
  - HYPOTHYROIDISM [None]
  - INSOMNIA [None]
  - MUSCLE TWITCHING [None]
  - PLATELET COUNT DECREASED [None]
  - RASH [None]
  - RASH ERYTHEMATOUS [None]
  - RASH MACULAR [None]
  - RESTLESS LEGS SYNDROME [None]
  - SKIN FISSURES [None]
  - THYROID DISORDER [None]
  - WHITE BLOOD CELL COUNT DECREASED [None]
